FAERS Safety Report 15446389 (Version 1)
Quarter: 2018Q3

REPORT INFORMATION
  Report Type: Spontaneous
  Country: US (occurrence: US)
  Receive Date: 20180925
  Receipt Date: 20180925
  Transmission Date: 20181010
  Serious: Yes (Life-Threatening, Hospitalization, Disabling, Other)
  Sender: FDA-Public Use
  Company Number: None

PATIENT
  Age: 71 Year
  Sex: Female
  Weight: 104.85 kg

DRUGS (1)
  1. EYLEA [Suspect]
     Active Substance: AFLIBERCEPT
     Indication: EYE SWELLING
     Dates: start: 20180918, end: 20180918

REACTIONS (5)
  - Headache [None]
  - Tinnitus [None]
  - Movement disorder [None]
  - Cerebrovascular accident [None]
  - Eye pain [None]

NARRATIVE: CASE EVENT DATE: 20180921
